FAERS Safety Report 5626418-7 (Version None)
Quarter: 2008Q1

REPORT INFORMATION
  Report Type: 
  Country: None (occurrence: None)
  Receive Date: 20080211
  Receipt Date: 20080130
  Transmission Date: 20080703
  Serious: Yes (Hospitalization)
  Sender: FDA-Public Use
  Company Number: 2008AL000567

PATIENT
  Age: 64 Year
  Sex: Female

DRUGS (1)
  1. VERAPAMIL HCL [Suspect]
     Indication: PALPITATIONS
     Dosage: 240 MG; QD
     Dates: start: 19840101

REACTIONS (3)
  - HIP FRACTURE [None]
  - OSTEOPOROSIS [None]
  - WRIST FRACTURE [None]
